FAERS Safety Report 23951795 (Version 1)
Quarter: 2024Q2

REPORT INFORMATION
  Report Type: Spontaneous
  Country: US (occurrence: None)
  Receive Date: 20240607
  Receipt Date: 20240607
  Transmission Date: 20240716
  Serious: Yes (Death)
  Sender: FDA-Public Use
  Company Number: None

PATIENT
  Age: 50 Year
  Sex: Female
  Weight: 68.04 kg

DRUGS (1)
  1. ENBREL [Suspect]
     Active Substance: BENZYL ALCOHOL\ETANERCEPT
     Indication: Psoriasis
     Dosage: INJECT 50MG SUBCUTANEOUSLY TWO TIMES A WEEK  72, 96 HOURS APART FOR 3 MONTHS AS DIRECTED
     Route: 058
     Dates: start: 202010

REACTIONS (2)
  - Nephrolithiasis [None]
  - Urinary tract infection [None]
